FAERS Safety Report 8491924-7 (Version None)
Quarter: 2012Q3

REPORT INFORMATION
  Report Type: 
  Country: None (occurrence: None)
  Receive Date: 20120706
  Receipt Date: 20120229
  Transmission Date: 20120928
  Serious: No
  Sender: FDA-Public Use
  Company Number: US-GLAXOSMITHKLINE-A0967947A

PATIENT
  Age: 64 Year
  Sex: Male

DRUGS (1)
  1. FLOVENT [Suspect]
     Indication: ASTHMA
     Dosage: 1PUFF TWICE PER DAY
     Route: 055
     Dates: start: 20090101

REACTIONS (7)
  - DYSPNOEA [None]
  - ANXIETY [None]
  - DYSPHONIA [None]
  - PRODUCT QUALITY ISSUE [None]
  - DRUG INEFFECTIVE [None]
  - PANIC REACTION [None]
  - SUFFOCATION FEELING [None]
